FAERS Safety Report 8803771 (Version 1)
Quarter: 2012Q4

REPORT INFORMATION
  Report Type: 
  Country: SI (occurrence: SI)
  Receive Date: 20120924
  Receipt Date: 20120924
  Transmission Date: 20130627
  Serious: Yes (Death)
  Sender: FDA-Public Use
  Company Number: SI-UCBSA-065976

PATIENT
  Age: 61 Year
  Sex: Female
  Weight: 78 kg

DRUGS (9)
  1. CIMZIA [Suspect]
     Route: 058
     Dates: start: 20120105, end: 20120607
  2. FOLACIN [Concomitant]
     Dosage: 10 MG
  3. CALCIUM CARBONATE [Concomitant]
  4. ALPHA D3 [Concomitant]
  5. ARCOXIA [Concomitant]
  6. ANSILAN [Concomitant]
  7. NOVORAPID [Concomitant]
     Dosage: 10 IE
  8. METILPREDNIZOLON [Concomitant]
     Dosage: 400MG PER DAY
  9. METOTREKSAT (METHOTREXATE) [Concomitant]
     Dosage: 12,50MG PER WEEK

REACTIONS (4)
  - Central nervous system lymphoma [Fatal]
  - Ischaemic stroke [Unknown]
  - Pneumonia [Unknown]
  - Urinary tract infection [Unknown]
